FAERS Safety Report 20142672 (Version 1)
Quarter: 2021Q4

REPORT INFORMATION
  Report Type: Spontaneous
  Country: US (occurrence: None)
  Receive Date: 20211202
  Receipt Date: 20211202
  Transmission Date: 20220304
  Serious: No
  Sender: FDA-Public Use
  Company Number: US-ROCHE-2734681

PATIENT

DRUGS (4)
  1. LUCENTIS [Suspect]
     Active Substance: RANIBIZUMAB
     Indication: Product used for unknown indication
     Dosage: 10 MG/ML SOLUTION FOR INJECTION?10 MG/ML SOLUTION FOR INJECTION IN PREFILLED SYRINGE
     Route: 065
  2. LUCENTIS [Suspect]
     Active Substance: RANIBIZUMAB
  3. LUCENTIS [Suspect]
     Active Substance: RANIBIZUMAB
  4. BEOVU [Concomitant]
     Active Substance: BROLUCIZUMAB-DBLL
     Dosage: 120 MG/ML SOLUTION FOR INJECTION IN PRE-FILLED SYRINGE

REACTIONS (3)
  - Retinal oedema [Unknown]
  - Subretinal fluid [Unknown]
  - Drug ineffective [Unknown]
